FAERS Safety Report 5258403-1 (Version None)
Quarter: 2007Q1

REPORT INFORMATION
  Report Type: 
  Country: None (occurrence: None)
  Receive Date: 20070306
  Receipt Date: 20070306
  Transmission Date: 20070707
  Serious: No
  Sender: FDA-Public Use
  Company Number: None

PATIENT
  Sex: Female
  Weight: 79.3795 kg

DRUGS (2)
  1. BACTRIM [Suspect]
     Indication: CYSTITIS
     Dosage: 1 PILL TWICE A DAY
     Dates: start: 20070119
  2. BACTRIM [Suspect]
     Indication: CYSTITIS
     Dosage: 1 PILL TWICE A DAY
     Dates: start: 20070126

REACTIONS (6)
  - HYPOAESTHESIA [None]
  - NAUSEA [None]
  - NERVE INJURY [None]
  - PAIN IN EXTREMITY [None]
  - PARAESTHESIA [None]
  - PYREXIA [None]
